FAERS Safety Report 5818744-3 (Version None)
Quarter: 2008Q3

REPORT INFORMATION
  Report Type: 
  Country: None (occurrence: None)
  Receive Date: 20080718
  Receipt Date: 20080718
  Transmission Date: 20090109
  Serious: No
  Sender: FDA-Public Use
  Company Number: None

PATIENT
  Sex: Male

DRUGS (3)
  1. NYSTATIN [Suspect]
     Dosage: 1/2 ML IN EACH CHEEK Q.I.D.
     Dates: start: 20070530
  2. RANITIDINE HCL [Concomitant]
  3. NUTRAMIGEN [Concomitant]

REACTIONS (5)
  - ABNORMAL BEHAVIOUR [None]
  - DIARRHOEA [None]
  - FREQUENT BOWEL MOVEMENTS [None]
  - NO THERAPEUTIC RESPONSE [None]
  - VOMITING [None]
